FAERS Safety Report 22216304 (Version 1)
Quarter: 2023Q2

REPORT INFORMATION
  Report Type: Report from Study
  Country: US (occurrence: US)
  Receive Date: 20230417
  Receipt Date: 20230417
  Transmission Date: 20230722
  Serious: Yes (Hospitalization, Other)
  Sender: FDA-Public Use
  Company Number: US-ABBVIE-4729485

PATIENT
  Sex: Female

DRUGS (1)
  1. SKYRIZI [Suspect]
     Active Substance: RISANKIZUMAB-RZAA
     Indication: Psoriasis
     Route: 058
     Dates: start: 20230313

REACTIONS (5)
  - Hospitalisation [Unknown]
  - Fall [Unknown]
  - Hepatic encephalopathy [Unknown]
  - Cardiac failure congestive [Unknown]
  - Wound [Unknown]

NARRATIVE: CASE EVENT DATE: 20230101
